FAERS Safety Report 8098391-6 (Version None)
Quarter: 2012Q1

REPORT INFORMATION
  Report Type: 
  Country: None (occurrence: None)
  Receive Date: 20120131
  Receipt Date: 20120123
  Transmission Date: 20120608
  Serious: Yes (Death, Life-Threatening, Other)
  Sender: FDA-Public Use
  Company Number: US-NAPPMUNDI-USA-2011-0080143

PATIENT
  Age: 46 Year
  Sex: Female
  Weight: 158.73 kg

DRUGS (9)
  1. DOXYLAMINE SUCCINATE [Concomitant]
     Indication: PRODUCT USED FOR UNKNOWN INDICATION
  2. SERTRALINE HYDROCHLORIDE [Concomitant]
     Indication: PRODUCT USED FOR UNKNOWN INDICATION
  3. OXYCODONE HCL [Suspect]
     Indication: ARTHRALGIA
  4. PHENCYCLIDINE [Suspect]
     Indication: DRUG ABUSE
  5. FLUOXETINE [Concomitant]
     Indication: PRODUCT USED FOR UNKNOWN INDICATION
  6. DEXTROMETHORPHAN HYDROBROMIDE [Concomitant]
     Indication: PRODUCT USED FOR UNKNOWN INDICATION
  7. OXYCODONE HCL [Suspect]
     Indication: BACK PAIN
  8. ALPRAZOLAM [Concomitant]
     Indication: PRODUCT USED FOR UNKNOWN INDICATION
  9. QUETIAPINE [Concomitant]
     Indication: PRODUCT USED FOR UNKNOWN INDICATION

REACTIONS (6)
  - DYSARTHRIA [None]
  - ASTHENIA [None]
  - SUBSTANCE ABUSE [None]
  - CARDIAC ARREST [None]
  - ABDOMINAL DISTENSION [None]
  - ACCIDENTAL OVERDOSE [None]
